FAERS Safety Report 10257258 (Version 5)
Quarter: 2014Q3

REPORT INFORMATION
  Report Type: Spontaneous
  Country: GB (occurrence: None)
  Receive Date: 20140620
  Receipt Date: 20140822
  Transmission Date: 20150326
  Serious: Yes (Other)
  Sender: FDA-Public Use
  Company Number: AUR-APL-2014-06512

PATIENT
  Age: 73 Year
  Sex: Male

DRUGS (6)
  1. CANDESARTAN (CANDESARTAN) [Suspect]
     Active Substance: CANDESARTAN
     Indication: PRODUCT USED FOR UNKNOWN INDICATION
  2. ALLOPURINOL (ALLOPURINOL) UNKNOWN [Suspect]
     Active Substance: ALLOPURINOL
     Indication: PRODUCT USED FOR UNKNOWN INDICATION
  3. BISOPROLOL 1.25 MG [Suspect]
     Active Substance: BISOPROLOL
     Indication: PRODUCT USED FOR UNKNOWN INDICATION
  4. ASPIRIN (ACETYLSALICYLIC ACID) [Suspect]
     Active Substance: ASPIRIN
     Indication: PRODUCT USED FOR UNKNOWN INDICATION
  5. AMIAS [Suspect]
     Active Substance: CANDESARTAN CILEXETIL
     Indication: PRODUCT USED FOR UNKNOWN INDICATION
  6. ATORVASTATIN (ATORVASTATIN) [Suspect]
     Active Substance: ATORVASTATIN
     Indication: PRODUCT USED FOR UNKNOWN INDICATION

REACTIONS (9)
  - Angiopathy [None]
  - Coronary artery occlusion [None]
  - Loss of consciousness [None]
  - High density lipoprotein decreased [None]
  - Chest pain [None]
  - Malaise [None]
  - Blood cholesterol abnormal [None]
  - Tinea pedis [None]
  - Dyspnoea [None]

NARRATIVE: CASE EVENT DATE: 201304
